FAERS Safety Report 6781855-2 (Version None)
Quarter: 2010Q2

REPORT INFORMATION
  Report Type: 
  Country: None (occurrence: None)
  Receive Date: 20100621
  Receipt Date: 20100614
  Transmission Date: 20101027
  Serious: Yes (Life-Threatening, Hospitalization)
  Sender: FDA-Public Use
  Company Number: GB-PERRIGO-10GB010404

PATIENT
  Age: 92 Year
  Sex: Male

DRUGS (1)
  1. NAPROXEN SODIUM 12063/0054 250 MG [Suspect]
     Indication: ARTHRITIS
     Dosage: 250 MG, TID
     Route: 048
     Dates: end: 20100527

REACTIONS (2)
  - HAEMATEMESIS [None]
  - PEPTIC ULCER [None]
